FAERS Safety Report 15786663 (Version 1)
Quarter: 2019Q1

REPORT INFORMATION
  Report Type: Spontaneous
  Country: DK (occurrence: DK)
  Receive Date: 20190103
  Receipt Date: 20190103
  Transmission Date: 20190417
  Serious: Yes (Death, Other)
  Sender: FDA-Public Use
  Company Number: DK-MYLANLABS-2018M1097559

PATIENT
  Age: 46 Year
  Sex: Male

DRUGS (3)
  1. IBUMETIN [Concomitant]
     Active Substance: IBUPROFEN
     Indication: PRODUCT USED FOR UNKNOWN INDICATION
  2. TRAMADOL. [Suspect]
     Active Substance: TRAMADOL
     Indication: PRODUCT USED FOR UNKNOWN INDICATION
     Dosage: UKENDT BRAND OG FORMULERING
     Dates: start: 20180413
  3. MORPHINE [Suspect]
     Active Substance: MORPHINE
     Indication: PRODUCT USED FOR UNKNOWN INDICATION
     Dosage: UNK
     Dates: start: 20180413

REACTIONS (3)
  - Sleep apnoea syndrome [Fatal]
  - Somnolence [Not Recovered/Not Resolved]
  - Oxygen saturation decreased [Fatal]

NARRATIVE: CASE EVENT DATE: 20180413
